FAERS Safety Report 7902390-1 (Version None)
Quarter: 2011Q4

REPORT INFORMATION
  Report Type: 
  Country: None (occurrence: None)
  Receive Date: 20111108
  Receipt Date: 20111017
  Transmission Date: 20120403
  Serious: Yes (Other)
  Sender: FDA-Public Use
  Company Number: US-GLAXOSMITHKLINE-A0949343A

PATIENT
  Age: 79 Year
  Sex: Male
  Weight: 67.5 kg

DRUGS (5)
  1. ACETAMINOPHEN [Concomitant]
     Route: 065
  2. ARZERRA [Suspect]
     Indication: PRODUCT USED FOR UNKNOWN INDICATION
     Dates: start: 20111010
  3. BENADRYL [Concomitant]
     Dosage: 50MG UNKNOWN
     Route: 065
  4. DECADRON [Concomitant]
  5. ZANTAC [Concomitant]
     Dosage: 50MG UNKNOWN
     Route: 065

REACTIONS (7)
  - CHILLS [None]
  - NAUSEA [None]
  - VOMITING [None]
  - OXYGEN SATURATION DECREASED [None]
  - BLOOD PRESSURE INCREASED [None]
  - NEUTROPENIA [None]
  - TREMOR [None]
